FAERS Safety Report 8375499-9 (Version None)
Quarter: 2012Q1

REPORT INFORMATION
  Report Type: 
  Country: None (occurrence: None)
  Receive Date: 20120323
  Receipt Date: 20110323
  Transmission Date: 20120608
  Serious: Yes (Other)
  Sender: FDA-Public Use
  Company Number: 163-21880-11022354

PATIENT
  Age: 65 Year
  Sex: Male
  Weight: 81.6475 kg

DRUGS (4)
  1. MORPHINE [Concomitant]
  2. FLOMAX [Concomitant]
  3. REVLIMID [Suspect]
     Indication: MULTIPLE MYELOMA
     Dosage: 25 MG, 1 IN 1 D, PO : 5 MG, 1 IN 1 D, PO
     Route: 048
     Dates: start: 20110101
  4. REVLIMID [Suspect]
     Indication: MULTIPLE MYELOMA
     Dosage: 25 MG, 1 IN 1 D, PO : 5 MG, 1 IN 1 D, PO
     Route: 048
     Dates: start: 20110201

REACTIONS (11)
  - OROPHARYNGEAL PAIN [None]
  - SINUS CONGESTION [None]
  - DYSPNOEA [None]
  - DENTAL CARIES [None]
  - CONSTIPATION [None]
  - FATIGUE [None]
  - HEADACHE [None]
  - BACK PAIN [None]
  - DEPRESSION [None]
  - EPISTAXIS [None]
  - DRY MOUTH [None]
